FAERS Safety Report 12711642 (Version 1)
Quarter: 2016Q3

REPORT INFORMATION
  Report Type: Spontaneous
  Country: US (occurrence: US)
  Receive Date: 20160902
  Receipt Date: 20160902
  Transmission Date: 20161109
  Serious: Yes (Hospitalization, Other)
  Sender: FDA-Public Use
  Company Number: US-009507513-1608USA014521

PATIENT
  Age: 85 Year
  Sex: Male

DRUGS (3)
  1. DULERA [Suspect]
     Active Substance: FORMOTEROL FUMARATE DIHYDRATE\MOMETASONE FUROATE
     Dosage: ONE PUFF IN THE MORNING
     Route: 055
     Dates: start: 201608, end: 201608
  2. DULERA [Suspect]
     Active Substance: FORMOTEROL FUMARATE DIHYDRATE\MOMETASONE FUROATE
     Dosage: TWO PUFFS IN THE MORNING
     Route: 055
     Dates: start: 20160826
  3. DULERA [Suspect]
     Active Substance: FORMOTEROL FUMARATE DIHYDRATE\MOMETASONE FUROATE
     Indication: ASTHMA
     Dosage: TWO PUFFS IN THE MORNING
     Route: 055
     Dates: start: 2015, end: 201608

REACTIONS (6)
  - Dyspnoea [Recovered/Resolved]
  - Cerebrovascular accident [Unknown]
  - Carotid artery occlusion [Unknown]
  - Product use issue [Unknown]
  - Intentional product use issue [Unknown]
  - Eye disorder [Unknown]

NARRATIVE: CASE EVENT DATE: 2015
